FAERS Safety Report 12624541 (Version 1)
Quarter: 2016Q3

REPORT INFORMATION
  Report Type: Spontaneous
  Country: US (occurrence: None)
  Receive Date: 20160804
  Receipt Date: 20160804
  Transmission Date: 20161109
  Serious: Yes (Other)
  Sender: FDA-Public Use
  Company Number: None

PATIENT
  Age: 53 Year
  Sex: Male
  Weight: 85.28 kg

DRUGS (1)
  1. LANSOPRAZOLE CAP 30MG, 30 MG DR. REDDY^S [Suspect]
     Active Substance: LANSOPRAZOLE
     Indication: GASTROOESOPHAGEAL REFLUX DISEASE
     Dosage: IN THE MORNING
     Route: 048
     Dates: start: 20160731

REACTIONS (4)
  - Product substitution issue [None]
  - Product formulation issue [None]
  - Gastrooesophageal reflux disease [None]
  - Dyspepsia [None]

NARRATIVE: CASE EVENT DATE: 20160731
